FAERS Safety Report 4843429-X (Version None)
Quarter: 2005Q4

REPORT INFORMATION
  Report Type: 
  Country: None (occurrence: None)
  Receive Date: 20051201
  Receipt Date: 20051006
  Transmission Date: 20060501
  Serious: Yes (Hospitalization, Other)
  Sender: FDA-Public Use
  Company Number: JP-MERCK-0510USA06207

PATIENT
  Age: 88 Year
  Sex: Male

DRUGS (10)
  1. COZAAR [Suspect]
     Indication: HYPERTENSION
     Route: 048
     Dates: end: 20051004
  2. AMARYL [Suspect]
     Indication: HYPERGLYCAEMIA
     Route: 048
     Dates: end: 20051004
  3. WARFARIN POTASSIUM [Concomitant]
     Indication: VASCULAR BYPASS GRAFT
     Route: 048
  4. BUFFERIN [Concomitant]
     Indication: VASCULAR BYPASS GRAFT
     Route: 048
  5. LANIRAPID [Concomitant]
     Indication: CARDIAC FAILURE
     Route: 048
  6. TAKEPRON [Concomitant]
     Indication: GASTRIC ULCER
     Route: 048
  7. ISCOTIN [Concomitant]
     Indication: PLEURAL EFFUSION
     Route: 048
  8. RIFADIN [Concomitant]
     Indication: PLEURAL EFFUSION
     Route: 048
  9. GASMOTIN [Concomitant]
     Indication: GASTRIC ULCER
     Route: 048
  10. ETHAMBUTOL HYDROCHLORIDE [Concomitant]
     Indication: PLEURAL EFFUSION
     Route: 048

REACTIONS (2)
  - HYPOGLYCAEMIA [None]
  - SUBDURAL HAEMATOMA [None]
